FAERS Safety Report 10013035 (Version 1)
Quarter: 2014Q1

REPORT INFORMATION
  Report Type: Other
  Country: BD (occurrence: BD)
  Receive Date: 20140314
  Receipt Date: 20140314
  Transmission Date: 20141002
  Serious: Yes (Other)
  Sender: FDA-Public Use
  Company Number: BD-BRISTOL-MYERS SQUIBB COMPANY-20517405

PATIENT
  Sex: Female

DRUGS (3)
  1. METFORMIN HCL [Suspect]
     Indication: OVULATION INDUCTION
     Dosage: ANOTHER DOT:6 MONTHS
  2. FOLLITROPIN ALFA [Suspect]
     Indication: OVULATION INDUCTION
     Dosage: D3 OF THE CYCLE + DAILY IF NECESSARY
  3. CHORIONIC GONADOTROPIN [Concomitant]
     Indication: OVULATION INDUCTION
     Route: 030

REACTIONS (3)
  - Blighted ovum [Unknown]
  - Off label use [Unknown]
  - Pregnancy [Recovered/Resolved]
